FAERS Safety Report 7730159-X (Version None)
Quarter: 2011Q3

REPORT INFORMATION
  Report Type: 
  Country: None (occurrence: None)
  Receive Date: 20110906
  Receipt Date: 20110825
  Transmission Date: 20111222
  Serious: Yes (Other)
  Sender: FDA-Public Use
  Company Number: BE-ROCHE-799006

PATIENT
  Sex: Female

DRUGS (1)
  1. HERCEPTIN [Suspect]
     Indication: BREAST CANCER
     Dosage: DOSE: LESS THAN EQUAL TO 720 MG
     Route: 042
     Dates: start: 20110209

REACTIONS (2)
  - DYSTONIA [None]
  - DYSKINESIA [None]
